FAERS Safety Report 4284653-7 (Version None)
Quarter: 2004Q1

REPORT INFORMATION
  Report Type: 
  Country: None (occurrence: None)
  Receive Date: 20040130
  Receipt Date: 20040107
  Transmission Date: 20041129
  Serious: Yes (Hospitalization, Other)
  Sender: FDA-Public Use
  Company Number: JP_040102486

PATIENT
  Age: 1 Year
  Sex: Male

DRUGS (3)
  1. ONCOVIN [Suspect]
     Indication: RHABDOMYOSARCOMA
     Dosage: 1.5 MG/M2
  2. DACTINOMYCIN [Concomitant]
  3. CYCLOPHOSPHAMIDE [Concomitant]

REACTIONS (6)
  - ABDOMINAL DISTENSION [None]
  - CHEST X-RAY ABNORMAL [None]
  - HYPOXIA [None]
  - PLATELET COUNT DECREASED [None]
  - PLEURAL EFFUSION [None]
  - VENOOCCLUSIVE LIVER DISEASE [None]
